FAERS Safety Report 15562787 (Version 1)
Quarter: 2018Q4

REPORT INFORMATION
  Report Type: Spontaneous
  Country: US (occurrence: US)
  Receive Date: 20181029
  Receipt Date: 20181029
  Transmission Date: 20190205
  Serious: Yes (Other)
  Sender: FDA-Public Use
  Company Number: US-SA-2018SA295544

PATIENT
  Age: 78 Year
  Sex: Female

DRUGS (2)
  1. NOVOLOG [Concomitant]
     Active Substance: INSULIN ASPART
  2. LANTUS SOLOSTAR [Suspect]
     Active Substance: INSULIN GLARGINE
     Indication: TYPE 2 DIABETES MELLITUS
     Dosage: 14 U, QD

REACTIONS (5)
  - End stage renal disease [Unknown]
  - Expired product administered [Unknown]
  - Immobilisation prolonged [Unknown]
  - Blindness [Unknown]
  - Device breakage [Unknown]
